FAERS Safety Report 14806197 (Version 1)
Quarter: 2018Q2

REPORT INFORMATION
  Report Type: Spontaneous
  Country: IT (occurrence: IT)
  Receive Date: 20180425
  Receipt Date: 20180425
  Transmission Date: 20180711
  Serious: Yes (Other)
  Sender: FDA-Public Use
  Company Number: IT-RARE DISEASE THERAPEUTICS, INC.-2046476

PATIENT
  Age: 19 Year
  Sex: Female

DRUGS (26)
  1. CYCLOPHOSPHAMIDE. [Suspect]
     Active Substance: CYCLOPHOSPHAMIDE
     Route: 042
  2. THIOTEPA. [Suspect]
     Active Substance: THIOTEPA
  3. FILGRASTIM [Suspect]
     Active Substance: FILGRASTIM
  4. FLUDARABINE [Suspect]
     Active Substance: FLUDARABINE PHOSPHATE
  5. DEXAMETHASONE. [Suspect]
     Active Substance: DEXAMETHASONE
     Route: 042
  6. LENOGRASTIM POWDER [Suspect]
     Active Substance: LENOGRASTIM
     Route: 058
  7. FILGRASTIM [Suspect]
     Active Substance: FILGRASTIM
     Route: 058
  8. CYTARABINE. [Suspect]
     Active Substance: CYTARABINE
     Route: 058
  9. BUSULFAN. [Suspect]
     Active Substance: BUSULFAN
     Route: 042
  10. IDARUBICIN [Suspect]
     Active Substance: IDARUBICIN
     Route: 042
  11. CYCLOPHOSPHAMIDE. [Suspect]
     Active Substance: CYCLOPHOSPHAMIDE
     Route: 042
  12. CYTARABINE. [Suspect]
     Active Substance: CYTARABINE
     Route: 042
  13. PREDNISONE. [Suspect]
     Active Substance: PREDNISONE
     Route: 048
  14. CYTARABINE. [Suspect]
     Active Substance: CYTARABINE
     Route: 042
  15. METHOTREXATE. [Suspect]
     Active Substance: METHOTREXATE
     Route: 042
  16. BLINATUMOMAB [Suspect]
     Active Substance: BLINATUMOMAB
  17. LENOGRASTIM POWDER [Suspect]
     Active Substance: LENOGRASTIM
     Route: 058
  18. FILGRASTIM [Suspect]
     Active Substance: FILGRASTIM
     Route: 058
  19. FILGRASTIM [Suspect]
     Active Substance: FILGRASTIM
     Route: 058
  20. PURIXAN [Suspect]
     Active Substance: MERCAPTOPURINE
     Indication: ACUTE LYMPHOCYTIC LEUKAEMIA
     Route: 048
  21. FOLINIC ACID [Suspect]
     Active Substance: LEUCOVORIN
  22. DEXAMETHASONE. [Suspect]
     Active Substance: DEXAMETHASONE
     Route: 042
  23. DEXAMETHASONE. [Suspect]
     Active Substance: DEXAMETHASONE
     Route: 048
  24. VINCRISTINE SULFATE. [Suspect]
     Active Substance: VINCRISTINE SULFATE
     Route: 042
  25. LENOGRASTIM POWDER [Suspect]
     Active Substance: LENOGRASTIM
     Route: 058
  26. LENOGRASTIM POWDER [Suspect]
     Active Substance: LENOGRASTIM

REACTIONS (3)
  - Neoplasm recurrence [Unknown]
  - Neurotoxicity [Recovering/Resolving]
  - Seizure [Recovered/Resolved]
